FAERS Safety Report 7232881-0 (Version None)
Quarter: 2011Q1

REPORT INFORMATION
  Report Type: 
  Country: None (occurrence: None)
  Receive Date: 20110119
  Receipt Date: 20110114
  Transmission Date: 20110831
  Serious: Yes (Hospitalization)
  Sender: FDA-Public Use
  Company Number: FR-PFIZER INC-2011009407

PATIENT
  Age: 67 Year
  Sex: Male

DRUGS (1)
  1. VFEND [Suspect]
     Dosage: 400 MG IN THE MORNING AND 200 MG IN THE EVENING, DAILY
     Route: 048
     Dates: start: 20031101, end: 20090421

REACTIONS (3)
  - SQUAMOUS CELL CARCINOMA [None]
  - GAMMA-GLUTAMYLTRANSFERASE INCREASED [None]
  - PHOTOSENSITIVITY REACTION [None]
